FAERS Safety Report 15483846 (Version 5)
Quarter: 2019Q3

REPORT INFORMATION
  Report Type: Spontaneous
  Country: US (occurrence: US)
  Receive Date: 20181010
  Receipt Date: 20190903
  Transmission Date: 20191004
  Serious: No
  Sender: FDA-Public Use
  Company Number: US-PFIZER INC-2016036348

PATIENT
  Age: 62 Year
  Sex: Female
  Weight: 77.98 kg

DRUGS (32)
  1. LASIX [Concomitant]
     Active Substance: FUROSEMIDE
     Dosage: 20 MG, 1X/DAY, (TAKE 0.5 TABLETS)
     Route: 048
     Dates: start: 20151013
  2. LASIX [Concomitant]
     Active Substance: FUROSEMIDE
     Dosage: 40 MG, DAILY
     Route: 048
     Dates: start: 20151207
  3. NORCO [Concomitant]
     Active Substance: ACETAMINOPHEN\HYDROCODONE BITARTRATE
     Indication: PAIN
     Dosage: UNK UNK, AS NEEDED (EVERY 6 HOURS)
     Route: 048
     Dates: start: 20151127
  4. ZESTRIL [Concomitant]
     Active Substance: LISINOPRIL
     Dosage: 10 MG, DAILY
     Route: 048
     Dates: start: 20150807
  5. PREDNISONE. [Concomitant]
     Active Substance: PREDNISONE
     Dosage: 5 MG, 2X/DAY, (WIH FOOD)
     Route: 048
     Dates: start: 20151105
  6. VESICARE [Concomitant]
     Active Substance: SOLIFENACIN SUCCINATE
     Dosage: 10 MG, 1X/DAY
     Route: 048
     Dates: start: 20151207
  7. VITAMIN D3 [Concomitant]
     Active Substance: CHOLECALCIFEROL
     Dosage: 1000 IU, 1X/DAY
     Route: 048
  8. LYRICA [Suspect]
     Active Substance: PREGABALIN
     Dosage: 75 MG, 2X/DAY
     Route: 048
     Dates: start: 20170731, end: 20170814
  9. PERICOLASE [Concomitant]
     Indication: CONSTIPATION
     Dosage: UNK, AS NEEDED (TAKE 2 TABLETS AT BEDTIME)
     Route: 048
     Dates: start: 20151127
  10. ZOCOR [Concomitant]
     Active Substance: SIMVASTATIN
     Dosage: 20 MG, DAILY
     Route: 048
     Dates: start: 20151207
  11. BENTYL [Concomitant]
     Active Substance: DICYCLOMINE HYDROCHLORIDE
     Dosage: 10 MG, 4X/DAY
     Route: 048
     Dates: start: 20151123
  12. LEXAPRO [Concomitant]
     Active Substance: ESCITALOPRAM OXALATE
     Dosage: 10 MG, 1X/DAY, (TAKE 0.5 TABLETS)
     Route: 048
     Dates: start: 20151116
  13. NEXIUM [Concomitant]
     Active Substance: ESOMEPRAZOLE MAGNESIUM
     Dosage: 40 MG, 1X/DAY
     Route: 048
     Dates: start: 20150112
  14. PLAQUENIL [Concomitant]
     Active Substance: HYDROXYCHLOROQUINE SULFATE
     Dosage: 200 MG, DAILY
     Route: 048
     Dates: start: 20151020
  15. METHOTREXATE. [Concomitant]
     Active Substance: METHOTREXATE
     Dosage: 1 ML, WEEKLY  (ON SUNDAY)
     Route: 058
     Dates: start: 20160103
  16. LIPOFLAVONOID [Concomitant]
     Active Substance: UNSPECIFIED INGREDIENT
     Dosage: 1 DF, 2X/DAY
     Route: 048
  17. LYRICA [Suspect]
     Active Substance: PREGABALIN
     Dosage: 150 MG, 2X/DAY
     Route: 048
     Dates: start: 20170731, end: 20171029
  18. CRANBERRY. [Concomitant]
     Active Substance: CRANBERRY
     Dosage: 450 MG, 1X/DAY (IN THE EVENING)
     Route: 048
  19. FISH OIL [Concomitant]
     Active Substance: FISH OIL
     Dosage: 1200 MG, 2X/DAY
     Route: 048
  20. LYRICA [Suspect]
     Active Substance: PREGABALIN
     Dosage: LESSER STRENGTH
  21. BACITRACIN. [Concomitant]
     Active Substance: BACITRACIN
     Dosage: UNK, AS NEEDED (APPLY 1 APPLICATION TO AFFECTED AREA 4 TIMES A DAY)
     Route: 061
     Dates: start: 20151127
  22. CELEBREX [Concomitant]
     Active Substance: CELECOXIB
     Dosage: 200 MG, 2X/DAY
     Route: 048
     Dates: start: 20151130
  23. COPAXONE [Concomitant]
     Active Substance: GLATIRAMER ACETATE
     Dosage: 1 ML, (INJECT THREE TIMES A WEEK)
     Route: 058
     Dates: start: 20150916
  24. NILSTAT [Concomitant]
     Active Substance: NYSTATIN
     Indication: RASH
     Dosage: UNK, 2X/DAY, (APPLY TO AFFECTED AREA UNDER SKIN FOLDS DIRECTLY)
     Route: 061
     Dates: start: 20151123
  25. SENOKOT-S [Concomitant]
     Active Substance: DOCUSATE SODIUM\SENNOSIDES
     Indication: CONSTIPATION
     Dosage: UNK, AS NEEDED (TAKE 2 TABLETS AT BEDTIME)
     Route: 048
     Dates: start: 20151127
  26. LYRICA [Suspect]
     Active Substance: PREGABALIN
     Indication: POLYNEUROPATHY
     Dosage: 225 MG, 2X/DAY
     Route: 048
     Dates: start: 20160104
  27. TYLENOL [Concomitant]
     Active Substance: ACETAMINOPHEN
     Indication: PAIN
     Dosage: UNK, AS NEEDED (TAKE 1-2 TABLET EVERY 4 HOURS)
     Route: 048
     Dates: start: 20140709
  28. PRINIVIL [Concomitant]
     Active Substance: LISINOPRIL
     Dosage: 10 MG, DAILY
     Route: 048
     Dates: start: 20150807
  29. FISH OIL [Concomitant]
     Active Substance: FISH OIL
     Dosage: 300 MG, 2X/DAY
     Route: 048
  30. PHENERGAN [Concomitant]
     Active Substance: PROMETHAZINE HYDROCHLORIDE
     Indication: NAUSEA
     Dosage: 0.2 ML, AS NEEDED (EVERY 6 HOURS)
     Route: 061
     Dates: start: 20150305
  31. FOLPLEX [Concomitant]
     Active Substance: CHOLECALCIFEROL\CYANOCOBALAMIN CO-57\FOLIC ACID\PYRIDOXINE HYDROCHLORIDE
     Dosage: 1 DF, ALTERNATE DAY, ([CYANOCOBALAMIN 0.5 MG, FOLIC ACID 2.2 MG, PYRIDOXINE HYDROCHLORIDE 25 MG]
     Route: 048
     Dates: start: 20150810
  32. ZOFRAN [Concomitant]
     Active Substance: ONDANSETRON HYDROCHLORIDE
     Indication: NAUSEA
     Dosage: 4 MG, AS NEEDED, (EVERY 4 HOURS)
     Route: 048
     Dates: start: 20151123

REACTIONS (1)
  - Therapeutic product effect incomplete [Unknown]
